FAERS Safety Report 12124331 (Version 2)
Quarter: 2016Q1

REPORT INFORMATION
  Report Type: Report from Study
  Country: BE (occurrence: BE)
  Receive Date: 20160229
  Receipt Date: 20160303
  Transmission Date: 20160526
  Serious: Yes (Other)
  Sender: FDA-Public Use
  Company Number: PHHY2016BE024110

PATIENT
  Age: 51 Year
  Sex: Male

DRUGS (15)
  1. SANDOSTATINE LAR [Suspect]
     Active Substance: OCTREOTIDE ACETATE
     Dosage: 30 MG, BIW (ONCE EVERY 15 DAYS)
     Route: 030
     Dates: start: 201108, end: 201201
  2. SOTALEX [Concomitant]
     Active Substance: SOTALOL
     Dosage: UNK
     Route: 065
     Dates: start: 201108
  3. SANDOSTATINE LAR [Suspect]
     Active Substance: OCTREOTIDE ACETATE
     Indication: CARCINOID SYNDROME
     Dosage: 30 MG, QMO (1 PER MONTH FOR 2)
     Route: 030
     Dates: start: 201011, end: 201101
  4. SANDOSTATINE LAR [Suspect]
     Active Substance: OCTREOTIDE ACETATE
     Dosage: 30 MG, UNK
     Route: 030
     Dates: start: 201212
  5. SANDOSTATINE LAR [Suspect]
     Active Substance: OCTREOTIDE ACETATE
     Dosage: 30 MG, TIW (1 EVERY 3 WEEKS FOR 2 TIMES)
     Route: 030
  6. SANDOSTATINE LAR [Suspect]
     Active Substance: OCTREOTIDE ACETATE
     Dosage: 30 MG, Q5W (1 EVERY 5 WEEKS FOR 2 TIMES)
     Route: 030
     Dates: end: 201305
  7. ASAFLOW [Concomitant]
     Active Substance: ASPIRIN
     Indication: PRODUCT USED FOR UNKNOWN INDICATION
     Route: 065
  8. ZOCOR [Concomitant]
     Active Substance: SIMVASTATIN
     Indication: PRODUCT USED FOR UNKNOWN INDICATION
     Route: 065
  9. SANDOSTATINE LAR [Suspect]
     Active Substance: OCTREOTIDE ACETATE
     Dosage: 30 MG, QMO (1 EVERY 4 WEEKS FOR 2 TIMES)
     Route: 030
  10. SANDOSTATINE LAR [Suspect]
     Active Substance: OCTREOTIDE ACETATE
     Dosage: 30 MG, QMO (1 EVERY 4 WEEKS)
     Route: 030
     Dates: start: 201305, end: 2014
  11. SANDOSTATINE LAR [Suspect]
     Active Substance: OCTREOTIDE ACETATE
     Dosage: 30 MG, BIW
     Route: 030
     Dates: start: 201210, end: 201212
  12. SOTALEX [Concomitant]
     Active Substance: SOTALOL
     Indication: PRODUCT USED FOR UNKNOWN INDICATION
     Dosage: UNK
     Route: 065
  13. D-CURE [Concomitant]
     Indication: PRODUCT USED FOR UNKNOWN INDICATION
     Dosage: 2 DF, QW
     Route: 065
     Dates: start: 201108
  14. SANDOSTATINE LAR [Suspect]
     Active Substance: OCTREOTIDE ACETATE
     Dosage: 30 MG, QMO (1 PER MONTH)
     Route: 030
     Dates: start: 201101
  15. SANDOSTATINE LAR [Suspect]
     Active Substance: OCTREOTIDE ACETATE
     Dosage: 30 MG, QMO (1 X EVERY 4 WEEKS)
     Route: 030
     Dates: start: 201409

REACTIONS (24)
  - Lymphadenopathy [Unknown]
  - Discomfort [Unknown]
  - Cardiac disorder [Recovering/Resolving]
  - Vomiting [Unknown]
  - Nausea [Unknown]
  - Vitamin D deficiency [Unknown]
  - Hypoinsulinaemia [Unknown]
  - Carcinoid crisis [Unknown]
  - Blood parathyroid hormone decreased [Unknown]
  - Muscle spasms [Unknown]
  - Arrhythmia [Unknown]
  - Arrhythmia [Recovered/Resolved]
  - Metabolic disorder [Unknown]
  - Inappropriate schedule of drug administration [Unknown]
  - Malaise [Unknown]
  - Hot flush [Unknown]
  - Blood glucagon increased [Unknown]
  - Lung disorder [Unknown]
  - 5-hydroxyindolacetic acid in urine decreased [Unknown]
  - Vitamin B12 deficiency [Unknown]
  - Flushing [Unknown]
  - Myalgia [Unknown]
  - Blood uric acid abnormal [Unknown]
  - Diarrhoea [Unknown]

NARRATIVE: CASE EVENT DATE: 2011
